FAERS Safety Report 9996820 (Version 1)
Quarter: 2014Q1

REPORT INFORMATION
  Report Type: Spontaneous
  Country: US (occurrence: US)
  Receive Date: 20140311
  Receipt Date: 20140311
  Transmission Date: 20141002
  Serious: No
  Sender: FDA-Public Use
  Company Number: US-GLAXOSMITHKLINE-A1028667A

PATIENT
  Age: 51 Year
  Sex: Female

DRUGS (1)
  1. NICORETTE WHITE ICE OTC 4MG [Suspect]
     Indication: PRODUCT USED FOR UNKNOWN INDICATION
     Dates: start: 201206

REACTIONS (2)
  - Intentional drug misuse [Not Recovered/Not Resolved]
  - Drug administration error [Unknown]
